FAERS Safety Report 8763368 (Version 6)
Quarter: 2013Q2

REPORT INFORMATION
  Report Type: Spontaneous
  Country: US (occurrence: US)
  Receive Date: 20120831
  Receipt Date: 20130510
  Transmission Date: 20140414
  Serious: Yes (Other)
  Sender: FDA-Public Use
  Company Number: US-PFIZER INC-2012213446

PATIENT
  Age: 55 Year
  Sex: Female
  Weight: 116 kg

DRUGS (7)
  1. XALKORI [Suspect]
     Indication: NON-SMALL CELL LUNG CANCER METASTATIC
     Dosage: 250 MG, 2X/DAY
     Route: 048
     Dates: start: 20120809
  2. XALKORI [Suspect]
     Dosage: UNK
  3. XALKORI [Suspect]
     Dosage: UNK
  4. LEXAPRO [Concomitant]
     Indication: DEPRESSION
     Dosage: 10 MG, 1X/DAY
  5. COUMADINE [Concomitant]
     Dosage: UNK
  6. FLOVENT [Concomitant]
     Dosage: UNK, 2X/DAY
  7. ALBUTEROL [Concomitant]

REACTIONS (23)
  - Lower respiratory tract infection [Unknown]
  - Diarrhoea [Unknown]
  - Dehydration [Unknown]
  - Blood pressure decreased [Unknown]
  - Sneezing [Unknown]
  - Cough [Unknown]
  - Haemoptysis [Recovering/Resolving]
  - Dyspnoea [Unknown]
  - Visual impairment [Recovered/Resolved]
  - Photopsia [Unknown]
  - Vitreous floaters [Unknown]
  - Defect conduction intraventricular [Unknown]
  - Atrioventricular block first degree [Unknown]
  - Sinus bradycardia [Unknown]
  - Fatigue [Not Recovered/Not Resolved]
  - Nausea [Recovered/Resolved]
  - Stomatitis [Recovered/Resolved]
  - Diarrhoea [Recovered/Resolved]
  - Pain in extremity [Unknown]
  - Neuropathy peripheral [Unknown]
  - Dyspepsia [Unknown]
  - Spondylitis [Unknown]
  - Fatigue [Unknown]
